FAERS Safety Report 23164416 (Version 1)
Quarter: 2023Q4

REPORT INFORMATION
  Report Type: Other
  Country: NL (occurrence: NL)
  Receive Date: 20231109
  Receipt Date: 20231109
  Transmission Date: 20240110
  Serious: Yes (Life-Threatening, Other)
  Sender: FDA-Public Use
  Company Number: None

PATIENT

DRUGS (5)
  1. MOMETASONE FUROATE [Suspect]
     Active Substance: MOMETASONE FUROATE
     Indication: Dry skin
     Dosage: UNK
     Route: 065
     Dates: start: 20230413
  2. MOMETASONE FUROATE [Suspect]
     Active Substance: MOMETASONE FUROATE
     Indication: Acne
  3. ISOTRETINOIN [Suspect]
     Active Substance: ISOTRETINOIN
     Indication: Acne
     Dosage: 20 MILLIGRAM, OD (1X PER DAG)
     Route: 065
     Dates: start: 20221219, end: 20230728
  4. BENZOYL PEROXIDE [Suspect]
     Active Substance: BENZOYL PEROXIDE
     Indication: Acne
     Dosage: UNK
     Route: 065
     Dates: start: 20230413
  5. BENZOYL PEROXIDE [Suspect]
     Active Substance: BENZOYL PEROXIDE
     Indication: Dry skin

REACTIONS (1)
  - Cerebral infarction [Unknown]

NARRATIVE: CASE EVENT DATE: 20230902
